FAERS Safety Report 13420496 (Version 3)
Quarter: 2017Q2

REPORT INFORMATION
  Report Type: Report from Study
  Country: CO (occurrence: CO)
  Receive Date: 20170407
  Receipt Date: 20170504
  Transmission Date: 20170830
  Serious: Yes (Hospitalization, Other)
  Sender: FDA-Public Use
  Company Number: CO-ASTELLAS-2017US013302

PATIENT
  Age: 38 Year
  Sex: Female

DRUGS (4)
  1. TACROLIMUS. [Suspect]
     Active Substance: TACROLIMUS
     Dosage: 20 MG, ONCE DAILY ( 4 CAPSULES OF 5 MG)
     Route: 048
     Dates: start: 20170111
  2. TACROLIMUS. [Suspect]
     Active Substance: TACROLIMUS
     Indication: RENAL TRANSPLANT
     Dosage: 18 MG, ONCE DAILY (3 CAPSULES OF 5 MG AND 3 CAPSULES OF 1 MG)
     Route: 048
     Dates: start: 20170101
  3. TACROLIMUS. [Suspect]
     Active Substance: TACROLIMUS
     Indication: RENAL TRANSPLANT
     Dosage: 18 MG, ONCE DAILY (3 CAPSULES OF 5 MG AND 3 CAPSULES OF 1 MG)
     Route: 048
     Dates: start: 20170101
  4. TACROLIMUS. [Suspect]
     Active Substance: TACROLIMUS
     Route: 048
     Dates: start: 20170401

REACTIONS (7)
  - Blood creatinine increased [Unknown]
  - Depressed mood [Recovering/Resolving]
  - Diarrhoea [Recovering/Resolving]
  - Pyrexia [Recovering/Resolving]
  - Tremor [Not Recovered/Not Resolved]
  - Decreased appetite [Recovering/Resolving]
  - Drug level decreased [Recovering/Resolving]

NARRATIVE: CASE EVENT DATE: 20170315
